FAERS Safety Report 10684104 (Version 1)
Quarter: 2014Q4

REPORT INFORMATION
  Report Type: Spontaneous
  Country: US (occurrence: US)
  Receive Date: 20141231
  Receipt Date: 20141231
  Transmission Date: 20150529
  Serious: No
  Sender: FDA-Public Use
  Company Number: US-ASTRAZENECA-2014SE98090

PATIENT
  Age: 4291 Week
  Sex: Female
  Weight: 73.5 kg

DRUGS (3)
  1. SEROQUEL XR [Suspect]
     Active Substance: QUETIAPINE FUMARATE
     Indication: SLEEP DISORDER
     Route: 048
     Dates: start: 20141215
  2. LEVOTHYROXINE [Concomitant]
     Active Substance: LEVOTHYROXINE
     Indication: THYROID DISORDER
     Route: 048
     Dates: start: 2009
  3. HYDRALAZINE [Concomitant]
     Active Substance: HYDRALAZINE HYDROCHLORIDE
     Indication: BLOOD PRESSURE ABNORMAL
     Route: 048
     Dates: start: 201408

REACTIONS (7)
  - Mouth swelling [Unknown]
  - Poor quality sleep [Unknown]
  - Oral discomfort [Unknown]
  - Product use issue [Unknown]
  - Bronchitis [Unknown]
  - Dry throat [Unknown]
  - Dysphonia [Unknown]

NARRATIVE: CASE EVENT DATE: 20141215
